FAERS Safety Report 4542070-6 (Version None)
Quarter: 2004Q4

REPORT INFORMATION
  Report Type: 
  Country: None (occurrence: None)
  Receive Date: 20041227
  Receipt Date: 20041217
  Transmission Date: 20050328
  Serious: Yes (Hospitalization)
  Sender: FDA-Public Use
  Company Number: 2004111463

PATIENT
  Age: 83 Year
  Sex: Male

DRUGS (4)
  1. DISOPYRAMIDE PHOSPHATE [Suspect]
     Indication: ATRIAL FIBRILLATION
     Dates: start: 19800101, end: 20040801
  2. PROCAINAMIDE HCL [Suspect]
     Indication: ATRIAL FIBRILLATION
     Dates: start: 19800101, end: 20040801
  3. BETAXOLOL [Suspect]
     Indication: ATRIAL FIBRILLATION
     Dates: start: 19800101, end: 20040801
  4. DIGOXIN [Suspect]
     Indication: ATRIAL FIBRILLATION
     Dates: start: 19800101, end: 20040801

REACTIONS (9)
  - ATRIAL FIBRILLATION [None]
  - ATRIAL FLUTTER [None]
  - BLOOD CREATINE INCREASED [None]
  - BRADYCARDIA [None]
  - CARDIOGENIC SHOCK [None]
  - CONVULSION [None]
  - DRUG LEVEL INCREASED [None]
  - GLOMERULONEPHRITIS MEMBRANOUS [None]
  - LOSS OF CONSCIOUSNESS [None]
